FAERS Safety Report 5430433-6 (Version None)
Quarter: 2007Q3

REPORT INFORMATION
  Report Type: 
  Country: None (occurrence: None)
  Receive Date: 20070830
  Receipt Date: 20070820
  Transmission Date: 20080115
  Serious: Yes (Life-Threatening, Hospitalization)
  Sender: FDA-Public Use
  Company Number: US-KINGPHARMUSA00001-K200701049

PATIENT

DRUGS (7)
  1. ALTACE [Suspect]
     Dosage: 2.5 MG, QD
     Route: 048
     Dates: start: 20070219
  2. LASILIX /00032601/ [Suspect]
     Dosage: 40 MG, QD
     Route: 048
     Dates: start: 20070219
  3. LOVENOX [Concomitant]
     Route: 058
  4. TRIFLUCAN [Concomitant]
     Route: 048
  5. INEXIUM   /01479302/ [Concomitant]
     Route: 048
  6. ESCITALOPRAM [Concomitant]
     Route: 048
  7. GELOX [Concomitant]
     Dosage: UNK, UNK
     Route: 048

REACTIONS (10)
  - BLOOD PRESSURE ABNORMAL [None]
  - DRUG INTERACTION [None]
  - FACIAL PALSY [None]
  - GAIT DISTURBANCE [None]
  - HYPERHIDROSIS [None]
  - HYPERKALAEMIA [None]
  - RENAL FAILURE ACUTE [None]
  - RESPIRATORY DISTRESS [None]
  - SPEECH DISORDER [None]
  - TACHYPNOEA [None]
